FAERS Safety Report 6983927-6 (Version None)
Quarter: 2010Q3

REPORT INFORMATION
  Report Type: 
  Country: None (occurrence: None)
  Receive Date: 20100914
  Receipt Date: 20090406
  Transmission Date: 20110219
  Serious: Yes (Hospitalization)
  Sender: FDA-Public Use
  Company Number: US-WYE-H08838109

PATIENT

DRUGS (1)
  1. TORISEL [Suspect]
     Indication: RENAL CELL CARCINOMA
     Dosage: WEEKLY-DOSE NOT PROVIDED
     Route: 042

REACTIONS (1)
  - RASH [None]
